FAERS Safety Report 4650455-2 (Version None)
Quarter: 2005Q3

REPORT INFORMATION
  Report Type: 
  Country: None (occurrence: None)
  Receive Date: 20050429
  Receipt Date: 20050420
  Transmission Date: 20060218
  Serious: Yes (Death, Other)
  Sender: FDA-Public Use
  Company Number: 2005-04-1433

PATIENT
  Age: 59 Year
  Sex: Male

DRUGS (1)
  1. INTERFERON ALFA INJECTABLE (LIKE INTRON A) [Suspect]
     Indication: MYCOSIS FUNGOIDES
     Dosage: 5-9 MIU 3-5XW

REACTIONS (6)
  - ACUTE FEBRILE NEUTROPHILIC DERMATOSIS [None]
  - DISEASE RECURRENCE [None]
  - DRUG INEFFECTIVE [None]
  - MYCOSIS FUNGOIDES [None]
  - RESPIRATORY FAILURE [None]
  - THERAPY NON-RESPONDER [None]
